FAERS Safety Report 8825184 (Version 2)
Quarter: 2013Q1

REPORT INFORMATION
  Report Type: Spontaneous
  Country: FR (occurrence: FR)
  Receive Date: 20121004
  Receipt Date: 20130110
  Transmission Date: 20140127
  Serious: Yes (Hospitalization)
  Sender: FDA-Public Use
  Company Number: FR-GLAXOSMITHKLINE-B0833691A

PATIENT
  Sex: Male

DRUGS (16)
  1. ZOPHREN [Suspect]
     Indication: PRODUCT USED FOR UNKNOWN INDICATION
     Dosage: 8MG PER DAY
     Route: 042
     Dates: start: 20120620
  2. ZELITREX [Suspect]
     Indication: PRODUCT USED FOR UNKNOWN INDICATION
     Dosage: 500MG TWICE PER DAY
     Route: 048
  3. DOXORUBICINE [Suspect]
     Indication: LYMPHOMA
     Dosage: 83MCG PER DAY
     Route: 042
     Dates: start: 20120620
  4. ENDOXAN [Suspect]
     Indication: LYMPHOMA
     Dosage: 1250MG CYCLIC
     Route: 042
     Dates: start: 20120620
  5. VINCRISTINE [Suspect]
     Indication: LYMPHOMA
     Dosage: 2MG PER DAY
     Route: 042
     Dates: start: 20120620
  6. BACTRIM FORTE [Suspect]
     Indication: PROPHYLAXIS
     Dosage: 1TAB SEE DOSAGE TEXT
     Route: 048
  7. ZYLORIC [Suspect]
     Indication: GOUT
     Dosage: 300MG PER DAY
     Route: 048
  8. UROMITEXAN [Suspect]
     Indication: PROPHYLAXIS
     Dosage: 415MG TWICE PER DAY
     Route: 042
     Dates: start: 20120620
  9. CORTANCYL [Suspect]
     Indication: PRODUCT USED FOR UNKNOWN INDICATION
     Route: 048
     Dates: start: 20120621
  10. POLARAMINE [Suspect]
     Indication: HYPERSENSITIVITY
     Dosage: 2MG PER DAY
     Route: 048
  11. LOXEN [Suspect]
     Indication: HYPERTENSION
     Dosage: 100MG PER DAY
     Route: 048
  12. MABTHERA [Suspect]
     Indication: LYMPHOMA
     Dosage: 623MG CYCLIC
     Route: 042
     Dates: start: 20120620
  13. SPECIAFOLDINE [Suspect]
     Indication: VITAMIN SUPPLEMENTATION
     Route: 048
  14. GRANOCYTE [Suspect]
     Indication: PRODUCT USED FOR UNKNOWN INDICATION
     Route: 058
  15. ARANESP [Suspect]
     Indication: ANAEMIA
     Dosage: 1INJ EVERY 3 WEEKS
     Route: 058
  16. METHYLPREDNISOLONE [Suspect]
     Indication: PROPHYLAXIS
     Route: 042
     Dates: start: 20120620

REACTIONS (1)
  - Neuropathy peripheral [Not Recovered/Not Resolved]
